FAERS Safety Report 5731134-7 (Version None)
Quarter: 2008Q2

REPORT INFORMATION
  Report Type: 
  Country: None (occurrence: None)
  Receive Date: 20080505
  Receipt Date: 20080422
  Transmission Date: 20081010
  Serious: Yes (Hospitalization, Other)
  Sender: FDA-Public Use
  Company Number: 2008-00530

PATIENT
  Age: 52 Year
  Sex: Male
  Weight: 59 kg

DRUGS (5)
  1. VELCADE [Suspect]
     Indication: MULTIPLE MYELOMA
     Dates: end: 20080117
  2. TRAMADOL HCL [Concomitant]
  3. VALACYCLOVIR HCL [Concomitant]
  4. TRIMOXAZOLE        (SULFAMETHOXAZOLE, TRIMETHOPRIM) [Concomitant]
  5. FOLIC ACID [Concomitant]

REACTIONS (9)
  - ELECTROENCEPHALOGRAM ABNORMAL [None]
  - FALL [None]
  - HEADACHE [None]
  - HYPERAESTHESIA [None]
  - LOSS OF CONSCIOUSNESS [None]
  - MUSCULOSKELETAL PAIN [None]
  - NECK PAIN [None]
  - NYSTAGMUS [None]
  - PALLOR [None]
